FAERS Safety Report 8825718 (Version 1)
Quarter: 2012Q4

REPORT INFORMATION
  Report Type: 
  Country: US (occurrence: US)
  Receive Date: 20121004
  Receipt Date: 20121004
  Transmission Date: 20130627
  Serious: Yes (Hospitalization)
  Sender: FDA-Public Use
  Company Number: US-B.I. PHARMACEUTICALS,INC./RIDGEFIELD-2012-BP-23612BP

PATIENT
  Age: 87 Year
  Sex: Female

DRUGS (2)
  1. PRADAXA [Suspect]
     Indication: ATRIAL FIBRILLATION
     Dosage: 300 mg
     Route: 048
     Dates: end: 201209
  2. ASPIRIN [Concomitant]

REACTIONS (2)
  - Dehydration [Recovered/Resolved]
  - Gastrointestinal haemorrhage [Recovered/Resolved]
